FAERS Safety Report 7660019-4 (Version None)
Quarter: 2011Q3

REPORT INFORMATION
  Report Type: 
  Country: None (occurrence: None)
  Receive Date: 20110802
  Receipt Date: 20110727
  Transmission Date: 20111222
  Serious: Yes (Life-Threatening, Hospitalization)
  Sender: FDA-Public Use
  Company Number: 2004-03-0399

PATIENT
  Sex: Male
  Weight: 73 kg

DRUGS (5)
  1. DEXAMETHASONE [Concomitant]
  2. TEMOZOLOMIDE [Suspect]
     Indication: GLIOBLASTOMA MULTIFORME
     Dosage: 180 MEQ;PO 180 MEQ;PO 180 MEQ;PO
     Route: 048
     Dates: start: 20031110, end: 20031125
  3. TEMOZOLOMIDE [Suspect]
     Indication: GLIOBLASTOMA MULTIFORME
     Dosage: 180 MEQ;PO 180 MEQ;PO 180 MEQ;PO
     Route: 048
     Dates: start: 20030915, end: 20031006
  4. TEMOZOLOMIDE [Suspect]
     Indication: GLIOBLASTOMA MULTIFORME
     Dosage: 180 MEQ;PO 180 MEQ;PO 180 MEQ;PO
     Route: 048
     Dates: start: 20031013, end: 20031102
  5. RADIATION THERAPY (THERAPEUTIC RADIOPHARMACEUTICALS) [Suspect]
     Indication: GLIOBLASTOMA MULTIFORME
     Dates: start: 20031219, end: 20040126

REACTIONS (6)
  - NEUTROPHIL COUNT DECREASED [None]
  - NEOPLASM PROGRESSION [None]
  - KAPOSI'S SARCOMA [None]
  - HAEMOGLOBIN DECREASED [None]
  - THROMBOCYTOPENIA [None]
  - PLATELET COUNT DECREASED [None]
